FAERS Safety Report 19212302 (Version 1)
Quarter: 2021Q2

REPORT INFORMATION
  Report Type: Spontaneous
  Country: IT (occurrence: IT)
  Receive Date: 20210504
  Receipt Date: 20210504
  Transmission Date: 20210717
  Serious: Yes (Other)
  Sender: FDA-Public Use
  Company Number: IT-AMGEN-ITASP2021062140

PATIENT
  Age: 56 Year
  Sex: Male

DRUGS (3)
  1. ADALIMUMAB [Suspect]
     Active Substance: ADALIMUMAB
     Dosage: Q4WK
     Route: 058
  2. METHOTREXATE. [Concomitant]
     Active Substance: METHOTREXATE
     Dosage: UNK
  3. ADALIMUMAB [Suspect]
     Active Substance: ADALIMUMAB
     Indication: PSORIATIC ARTHROPATHY
     Dosage: UNK, Q3WK DURING THE FIRST 3 MONTHS
     Route: 058

REACTIONS (2)
  - Psoriatic arthropathy [Unknown]
  - Dactylitis [Unknown]
